FAERS Safety Report 6564941-1 (Version None)
Quarter: 2010Q1

REPORT INFORMATION
  Report Type: 
  Country: None (occurrence: None)
  Receive Date: 20100201
  Receipt Date: 20100120
  Transmission Date: 20100710
  Serious: Yes (Death)
  Sender: FDA-Public Use
  Company Number: DE-TEVA-221884ISR

PATIENT
  Sex: Female
  Weight: 100 kg

DRUGS (5)
  1. FLUDARABINE [Suspect]
     Route: 042
     Dates: start: 20091022, end: 20091026
  2. TREOSULFAN [Suspect]
     Route: 042
     Dates: start: 20091022, end: 20091024
  3. ANTI-THYMOCYTE GLOBULIN NOS [Suspect]
     Route: 042
     Dates: start: 20091024, end: 20091026
  4. METHOTREXATE [Suspect]
     Indication: IMMUNOSUPPRESSION
     Route: 042
     Dates: start: 20091020, end: 20091102
  5. METHOTREXATE [Suspect]
     Route: 042
     Dates: start: 20091031, end: 20091102

REACTIONS (1)
  - SEPSIS [None]
